FAERS Safety Report 19661306 (Version 2)
Quarter: 2022Q2

REPORT INFORMATION
  Report Type: Spontaneous
  Country: US (occurrence: US)
  Receive Date: 20210805
  Receipt Date: 20220509
  Transmission Date: 20220721
  Serious: No
  Sender: FDA-Public Use
  Company Number: US-PFIZER INC-2021855555

PATIENT
  Age: 60 Year
  Sex: Female

DRUGS (4)
  1. GABAPENTIN [Suspect]
     Active Substance: GABAPENTIN
     Dosage: UNK
  2. TUKYSA [Suspect]
     Active Substance: TUCATINIB
     Indication: Breast cancer female
     Dosage: UNK
  3. TUKYSA [Suspect]
     Active Substance: TUCATINIB
     Dosage: UNK
  4. TUKYSA [Suspect]
     Active Substance: TUCATINIB
     Dosage: UNK

REACTIONS (7)
  - Malaise [Unknown]
  - Rash [Unknown]
  - Pruritus [Unknown]
  - Feeling abnormal [Unknown]
  - Back pain [Unknown]
  - Scab [Unknown]
  - Erythema [Unknown]
